FAERS Safety Report 21279884 (Version 2)
Quarter: 2022Q3

REPORT INFORMATION
  Report Type: Spontaneous
  Country: US (occurrence: US)
  Receive Date: 20220901
  Receipt Date: 20220916
  Transmission Date: 20221026
  Serious: Yes (Hospitalization)
  Sender: FDA-Public Use
  Company Number: US-TEVA-2022-US-2068582

PATIENT

DRUGS (3)
  1. METHYLPREDNISOLONE [Suspect]
     Active Substance: METHYLPREDNISOLONE
     Indication: Sacral pain
     Dosage: METHYLPREDNISOLONE 20MG WAS DILUTED IN 0.5% BUPIVACAINE TO MAKE A FINAL VOLUME OF ABOUT 2-3ML
     Route: 014
  2. BUPIVACAINE [Suspect]
     Active Substance: BUPIVACAINE
     Indication: Sacral pain
     Dosage: METHYLPREDNISOLONE 20MG WAS DILUTED IN 0.5% BUPIVACAINE TO MAKE A FINAL VOLUME OF ABOUT 2-3ML
     Route: 014
  3. SALINE [Concomitant]
     Active Substance: SODIUM CHLORIDE
     Indication: Product used for unknown indication
     Route: 065

REACTIONS (2)
  - Hypoaesthesia [Recovered/Resolved]
  - Sciatica [Recovered/Resolved]
